FAERS Safety Report 7772065-0 (Version None)
Quarter: 2011Q3

REPORT INFORMATION
  Report Type: 
  Country: None (occurrence: None)
  Receive Date: 20110922
  Receipt Date: 20100816
  Transmission Date: 20111222
  Serious: Yes (Other)
  Sender: FDA-Public Use
  Company Number: US-ASTRAZENECA-2009UW07852

PATIENT
  Age: 15926 Day
  Sex: Male
  Weight: 143.8 kg

DRUGS (14)
  1. ABILIFY [Concomitant]
     Dates: start: 20080101, end: 20090101
  2. THORAZINE [Concomitant]
     Dates: start: 20050101, end: 20060101
  3. SEROQUEL [Suspect]
     Indication: SCHIZOPHRENIA, PARANOID TYPE
     Route: 048
     Dates: start: 20060201, end: 20080301
  4. SEROQUEL [Suspect]
     Dosage: 100 MG-300 MG
     Route: 048
     Dates: start: 20060201, end: 20080601
  5. ZYPREXA [Concomitant]
     Indication: SCHIZOPHRENIA, PARANOID TYPE
     Dates: start: 20050911
  6. ZYPREXA [Concomitant]
     Dosage: 15 MG-20 MG
     Dates: start: 20051101, end: 20080501
  7. SEROQUEL [Suspect]
     Indication: SCHIZOPHRENIA
     Route: 048
     Dates: start: 20060201, end: 20080301
  8. SEROQUEL [Suspect]
     Dosage: 100 MG-300 MG
     Route: 048
     Dates: start: 20060201, end: 20080601
  9. GEODON [Concomitant]
     Dates: start: 20030101
  10. SEROQUEL [Suspect]
     Dosage: 100 MG-300 MG
     Route: 048
     Dates: start: 20060201, end: 20080601
  11. LIPITOR [Concomitant]
  12. HALDOL [Concomitant]
     Dosage: 5 MG-20 MG
     Dates: start: 19950101, end: 20030101
  13. SEROQUEL [Suspect]
     Indication: BIPOLAR DISORDER
     Route: 048
     Dates: start: 20060201, end: 20080301
  14. RISPERDAL [Concomitant]
     Indication: SCHIZOPHRENIA, PARANOID TYPE
     Dates: start: 20090201

REACTIONS (8)
  - PARANOIA [None]
  - HYPERLIPIDAEMIA [None]
  - HYPERGLYCAEMIA [None]
  - BLOOD TRIGLYCERIDES INCREASED [None]
  - BLOOD CHOLESTEROL INCREASED [None]
  - SUICIDAL IDEATION [None]
  - TYPE 2 DIABETES MELLITUS [None]
  - HALLUCINATION [None]
